FAERS Safety Report 25438928 (Version 1)
Quarter: 2025Q2

REPORT INFORMATION
  Report Type: Spontaneous
  Country: US (occurrence: US)
  Receive Date: 20250616
  Receipt Date: 20250616
  Transmission Date: 20250717
  Serious: Yes (Other)
  Sender: NOVARTIS
  Company Number: EC-2025-190163

PATIENT
  Age: 60 Year
  Sex: Male

DRUGS (3)
  1. EVEROLIMUS [Suspect]
     Active Substance: EVEROLIMUS
     Indication: Product used for unknown indication
     Route: 065
  2. LENVIMA [Suspect]
     Active Substance: LENVATINIB
     Indication: Renal cell carcinoma
     Dosage: 14 MG, QD
     Route: 065
     Dates: start: 20250523
  3. LENVIMA [Suspect]
     Active Substance: LENVATINIB
     Dosage: 18 MG, QD
     Route: 065
     Dates: start: 20250526

REACTIONS (7)
  - Hemiparesis [Unknown]
  - Generalised tonic-clonic seizure [Unknown]
  - Blood sodium decreased [Unknown]
  - Fatigue [Unknown]
  - Weight decreased [Unknown]
  - Lethargy [Unknown]
  - Drug intolerance [Unknown]
